FAERS Safety Report 4987616-9 (Version None)
Quarter: 2006Q2

REPORT INFORMATION
  Report Type: 
  Country: None (occurrence: None)
  Receive Date: 20060501
  Receipt Date: 20060418
  Transmission Date: 20061013
  Serious: Yes (Life-Threatening)
  Sender: FDA-Public Use
  Company Number: TW-NOVOPROD-252680

PATIENT
  Age: 16 Year
  Sex: Female

DRUGS (1)
  1. NORDITROPIN SIMPLEXX [Suspect]
     Indication: BODY HEIGHT BELOW NORMAL
     Dosage: .33 MG/KG, WEEK
     Route: 058

REACTIONS (2)
  - CONVULSION [None]
  - NEUROECTODERMAL NEOPLASM [None]
